FAERS Safety Report 4282347-5 (Version None)
Quarter: 2004Q1

REPORT INFORMATION
  Report Type: 
  Country: None (occurrence: None)
  Receive Date: 20040130
  Receipt Date: 20040126
  Transmission Date: 20041129
  Serious: Yes (Disabling)
  Sender: FDA-Public Use
  Company Number: WAES 0401USA01949

PATIENT
  Age: 52 Year
  Sex: Female

DRUGS (4)
  1. ZYRTEC [Concomitant]
  2. ESTRADIOL [Concomitant]
  3. ZETIA [Suspect]
     Indication: BLOOD CHOLESTEROL INCREASED
     Route: 048
     Dates: start: 20040101
  4. LEVOXYL [Concomitant]

REACTIONS (4)
  - ASTHMA [None]
  - GASTRITIS [None]
  - GASTROINTESTINAL HAEMORRHAGE [None]
  - WHEEZING [None]
